FAERS Safety Report 4556366-5 (Version None)
Quarter: 2005Q1

REPORT INFORMATION
  Report Type: 
  Country: None (occurrence: None)
  Receive Date: 20050103
  Receipt Date: 20040816
  Transmission Date: 20050727
  Serious: Yes (Other)
  Sender: FDA-Public Use
  Company Number: 2004UW17399

PATIENT
  Age: 77 Year
  Sex: Female
  Weight: 45.3597 kg

DRUGS (3)
  1. CRESTOR [Suspect]
     Indication: HYPERCHOLESTEROLAEMIA
     Dosage: 10 MG QD PO
     Route: 048
     Dates: start: 20040801
  2. ATACAND [Concomitant]
  3. ATENOLOL [Concomitant]

REACTIONS (2)
  - ANXIETY [None]
  - NIGHT SWEATS [None]
